FAERS Safety Report 6786889-X (Version None)
Quarter: 2010Q2

REPORT INFORMATION
  Report Type: 
  Country: None (occurrence: None)
  Receive Date: 20100621
  Receipt Date: 20100607
  Transmission Date: 20101027
  Serious: Yes (Hospitalization)
  Sender: FDA-Public Use
  Company Number: 2010-1992

PATIENT
  Age: 74 Year
  Sex: Female

DRUGS (1)
  1. APO-GO AMPOULES (APO-GO) (APORMORPHINE HYDROCHLORIDE) (APOMORPHINE HYD [Suspect]
     Indication: DRUG USE FOR UNKNOWN INDICATION
     Dosage: 07:30 TO 20:45, 07:30 TO 20:45, SUBCUTANEOUS
     Route: 058
     Dates: start: 20100308

REACTIONS (1)
  - GENERAL PHYSICAL HEALTH DETERIORATION [None]
